FAERS Safety Report 8425727-6 (Version None)
Quarter: 2012Q2

REPORT INFORMATION
  Report Type: 
  Country: None (occurrence: None)
  Receive Date: 20120611
  Receipt Date: 20120530
  Transmission Date: 20120825
  Serious: Yes (Hospitalization, Other)
  Sender: FDA-Public Use
  Company Number: DE-ELI_LILLY_AND_COMPANY-DE201205010506

PATIENT
  Age: 68 Year
  Sex: Female

DRUGS (10)
  1. BISOPROLOL FUMARATE [Concomitant]
     Indication: HYPERTONIA
     Route: 048
  2. NITREPRESS [Concomitant]
     Indication: HYPERTONIA
     Dosage: 20 MG, 2 IN 1D
     Route: 048
  3. PANTOPRAZOLE [Concomitant]
     Indication: PAIN
     Route: 048
  4. QUINAPRIL [Concomitant]
     Indication: HYPERTONIA
     Route: 048
  5. GLIMEPIRID [Concomitant]
     Indication: HYPERTONIA
     Route: 048
  6. GEMCITABINE HYDROCHLORIDE [Suspect]
     Indication: PANCREATIC CARCINOMA METASTATIC
     Dosage: 1000 MG/M2, TOTAL 2000MG 1 IN 1D
     Route: 042
     Dates: start: 20120302
  7. HYDROCHLOROTHIAZIDE [Concomitant]
     Indication: HYPERTONIA
     Route: 048
  8. VALORON [Concomitant]
     Indication: PAIN
     Dosage: UNK
     Route: 048
     Dates: start: 20120223
  9. MOVIPREP [Concomitant]
     Indication: CONSTIPATION PROPHYLAXIS
     Dosage: UNK
     Route: 048
     Dates: start: 20120301
  10. LEVOTHYROXINE SODIUM [Concomitant]
     Indication: HYPERTONIA
     Route: 048

REACTIONS (3)
  - OESOPHAGITIS [None]
  - NAUSEA [None]
  - VOMITING [None]
